FAERS Safety Report 6025279-4 (Version None)
Quarter: 2008Q4

REPORT INFORMATION
  Report Type: 
  Country: None (occurrence: None)
  Receive Date: 20081231
  Receipt Date: 20081223
  Transmission Date: 20090506
  Serious: Yes (Other)
  Sender: FDA-Public Use
  Company Number: PHBS2008ES06719

PATIENT
  Age: 47 Year
  Sex: Male

DRUGS (1)
  1. ZOLEDRONIC ACID [Suspect]
     Indication: PROSTATE CANCER METASTATIC

REACTIONS (11)
  - BONE DISORDER [None]
  - BREATH ODOUR [None]
  - DENTAL FISTULA [None]
  - DYSGEUSIA [None]
  - INFLAMMATION [None]
  - LOOSE TOOTH [None]
  - MUCOSAL ULCERATION [None]
  - NAUSEA [None]
  - OSTEONECROSIS [None]
  - PYREXIA [None]
  - TOOTH EXTRACTION [None]
